FAERS Safety Report 20696988 (Version 1)
Quarter: 2022Q2

REPORT INFORMATION
  Report Type: Spontaneous
  Country: US (occurrence: None)
  Receive Date: 20220408
  Receipt Date: 20220408
  Transmission Date: 20220721
  Serious: No
  Sender: FDA-Public Use
  Company Number: None

PATIENT
  Age: 46 Year
  Sex: Male

DRUGS (1)
  1. COSENTYX [Suspect]
     Active Substance: SECUKINUMAB
     Indication: Psoriatic arthropathy
     Dosage: INJECTE 150MG (1 PEN ) SUBCUTANEOUSLY ONCE A WEEK FOR 5 WEEKS AS DIRECTED ?
     Route: 058
     Dates: start: 202203

REACTIONS (1)
  - Nasopharyngitis [None]
